FAERS Safety Report 9276872 (Version 1)
Quarter: 2013Q2

REPORT INFORMATION
  Report Type: Spontaneous
  Country: HU (occurrence: HU)
  Receive Date: 20130507
  Receipt Date: 20130507
  Transmission Date: 20140414
  Serious: Yes (Other)
  Sender: FDA-Public Use
  Company Number: HU-BAXTER-2013BAX017049

PATIENT
  Age: 53 Year
  Sex: Female

DRUGS (1)
  1. ENDOXAN 1G POR OLDATOS INJEKCI?HOZ [Suspect]
     Indication: NEOPLASM MALIGNANT

REACTIONS (1)
  - Polyneuropathy [Unknown]
